FAERS Safety Report 18793048 (Version 1)
Quarter: 2021Q1

REPORT INFORMATION
  Report Type: Spontaneous
  Country: US (occurrence: US)
  Receive Date: 20210127
  Receipt Date: 20210127
  Transmission Date: 20210419
  Serious: Yes (Other)
  Sender: FDA-Public Use
  Company Number: US-PFIZER INC-2021045562

PATIENT
  Age: 30 Year
  Sex: Male

DRUGS (2)
  1. FENTANYL CITRATE. [Suspect]
     Active Substance: FENTANYL CITRATE
     Dosage: UNK
  2. COCAINE [Suspect]
     Active Substance: COCAINE
     Dosage: UNK

REACTIONS (7)
  - Learning disorder [Unknown]
  - Liver injury [Unknown]
  - Substance abuse [Unknown]
  - Hippocampal atrophy [Unknown]
  - Acute kidney injury [Unknown]
  - Respiratory failure [Unknown]
  - Memory impairment [Unknown]
